FAERS Safety Report 4957902-7 (Version None)
Quarter: 2006Q1

REPORT INFORMATION
  Report Type: 
  Country: None (occurrence: None)
  Receive Date: 20060324
  Receipt Date: 20060308
  Transmission Date: 20060701
  Serious: Yes (Death)
  Sender: FDA-Public Use
  Company Number: JP200602004672

PATIENT
  Age: 53 Year
  Sex: Male
  Weight: 46 kg

DRUGS (17)
  1. HUMALOG [Suspect]
     Indication: DIABETES MELLITUS
     Dosage: 3/D SUB. PUMP
     Dates: end: 20051201
  2. LANTUS [Concomitant]
  3. KINEDAK (EPALRESTAT) TABLET [Concomitant]
  4. NAUZELIN (DOMPERIDONE) TABLET [Concomitant]
  5. NORVASC /DEN/(AMLODIPINE BESILATE) [Concomitant]
  6. LANSOPRAZOLE [Concomitant]
  7. BLOPRESS /GFR/ (CANDESARTAN CILEXETIL) TABLET [Concomitant]
  8. AMOBAN (ZOPICLONE) TABLET [Concomitant]
  9. ROHPINOL (FLUNITRAZEPAM) TABLET [Concomitant]
  10. LENDORMIN (BROTIZOLAM) TABLET [Concomitant]
  11. DEPAS (ETIZOLAM) TABLET [Concomitant]
  12. MEXITIL [Concomitant]
  13. VITAMEDIN CAPSULE (BENFOTIAMINE, CYANOCOBALAMIN, PYRIDOXINE HYDROCHLOR [Concomitant]
  14. DORNER (BERAPROST SODIUM)) TABLET [Concomitant]
  15. BIO THREE (BACTERIA NOS) TABLET [Concomitant]
  16. SIGMART (NICORANDIL) TABLET [Concomitant]
  17. POLYCARBOPHIL CALCIUM (POLYCARBOPHIL CALCIUM) TABLET [Concomitant]

REACTIONS (4)
  - CARDIO-RESPIRATORY ARREST [None]
  - HYPOGLYCAEMIA [None]
  - MEDICAL DEVICE COMPLICATION [None]
  - WRONG DRUG ADMINISTERED [None]
